FAERS Safety Report 5010009-5 (Version None)
Quarter: 2006Q2

REPORT INFORMATION
  Report Type: 
  Country: None (occurrence: None)
  Receive Date: 20060404
  Receipt Date: 20051109
  Transmission Date: 20061013
  Serious: No
  Sender: FDA-Public Use
  Company Number: US200511000460

PATIENT
  Age: 52 Year
  Sex: Male

DRUGS (2)
  1. CYMBALTA [Suspect]
     Indication: MAJOR DEPRESSION
     Dosage: 30 MG
     Dates: start: 20051101, end: 20051101
  2. CYMBALTA [Suspect]
     Dosage: 60 MG
     Dates: start: 20051101

REACTIONS (2)
  - NAUSEA [None]
  - STOMACH DISCOMFORT [None]
